FAERS Safety Report 9369761 (Version 2)
Quarter: 2013Q3

REPORT INFORMATION
  Report Type: Spontaneous
  Country: JP (occurrence: JP)
  Receive Date: 20130626
  Receipt Date: 20130708
  Transmission Date: 20140515
  Serious: Yes (Other)
  Sender: FDA-Public Use
  Company Number: JP-ASTELLAS-2013JP006949

PATIENT
  Sex: Female

DRUGS (1)
  1. BETANIS [Suspect]
     Dosage: 50 MG, UNKNOWN/D
     Route: 048

REACTIONS (1)
  - Delirium [Recovered/Resolved]
